FAERS Safety Report 5500895-4 (Version None)
Quarter: 2007Q4

REPORT INFORMATION
  Report Type: 
  Country: None (occurrence: None)
  Receive Date: 20071029
  Receipt Date: 20070926
  Transmission Date: 20080405
  Serious: No
  Sender: FDA-Public Use
  Company Number: FR-ASTRAZENECA-2007CG01074

PATIENT
  Age: 10882 Day
  Sex: Female
  Weight: 55 kg

DRUGS (2)
  1. RHINOCORT [Suspect]
     Indication: NASAL CONGESTION
     Route: 045
     Dates: start: 20070707, end: 20070709
  2. CETIRIZINE HCL [Concomitant]
     Indication: HYPERSENSITIVITY
     Route: 048
     Dates: start: 20070401

REACTIONS (3)
  - ERYTHEMA [None]
  - FACE OEDEMA [None]
  - URTICARIA [None]
